FAERS Safety Report 4567960-X (Version None)
Quarter: 2005Q1

REPORT INFORMATION
  Report Type: 
  Country: None (occurrence: None)
  Receive Date: 20050128
  Receipt Date: 20030805
  Transmission Date: 20050727
  Serious: Yes (Hospitalization)
  Sender: FDA-Public Use
  Company Number: GXKR2003NL00580

PATIENT
  Age: 55 Year
  Sex: Female

DRUGS (2)
  1. IBUPROFEN [Suspect]
     Indication: ANALGESIC EFFECT
     Dosage: ORAL
     Route: 048
  2. DESMOPRESSIN (NGX)(DESMOPRESSIN) [Suspect]
     Indication: PROPHYLAXIS

REACTIONS (4)
  - BLOOD OSMOLARITY DECREASED [None]
  - COMA [None]
  - DRUG INTERACTION [None]
  - HYPONATRAEMIA [None]
